FAERS Safety Report 14732826 (Version 15)
Quarter: 2020Q1

REPORT INFORMATION
  Report Type: Spontaneous
  Country: US (occurrence: US)
  Receive Date: 20180409
  Receipt Date: 20200114
  Transmission Date: 20200409
  Serious: No
  Sender: FDA-Public Use
  Company Number: US-PFIZER INC-2017495170

PATIENT
  Age: 68 Year
  Sex: Female

DRUGS (3)
  1. LYRICA [Suspect]
     Active Substance: PREGABALIN
     Dosage: 150 MG, 3X/DAY
     Route: 048
  2. LYRICA [Suspect]
     Active Substance: PREGABALIN
     Dosage: 1 DF, DAILY
     Route: 048
  3. LYRICA [Suspect]
     Active Substance: PREGABALIN
     Indication: PAIN IN EXTREMITY
     Dosage: 2 DF, DAILY
     Route: 048

REACTIONS (7)
  - Pain in extremity [Recovering/Resolving]
  - Fatigue [Unknown]
  - Withdrawal syndrome [Unknown]
  - Nerve injury [Unknown]
  - Malaise [Unknown]
  - Joint injury [Unknown]
  - Intentional product use issue [Unknown]
